FAERS Safety Report 18002211 (Version 1)
Quarter: 2020Q3

REPORT INFORMATION
  Report Type: Spontaneous
  Country: FR (occurrence: FR)
  Receive Date: 20200709
  Receipt Date: 20200709
  Transmission Date: 20201103
  Serious: Yes (Hospitalization)
  Sender: FDA-Public Use
  Company Number: FR-MYLANLABS-2020M1061115

PATIENT
  Age: 30 Year
  Sex: Female
  Weight: 84.4 kg

DRUGS (14)
  1. TRAMADOL HYDROCHLORIDE. [Concomitant]
     Active Substance: TRAMADOL HYDROCHLORIDE
     Dosage: UNK
  2. DOLIPRANE [Concomitant]
     Active Substance: ACETAMINOPHEN
     Dosage: UNK
  3. ROSUVASTATINE                      /01588601/ [Concomitant]
     Active Substance: ROSUVASTATIN
     Dosage: UNK
  4. FUMAFER [Concomitant]
     Active Substance: FERROUS FUMARATE
     Dosage: UNK
  5. RACECADOTRIL BGR [Concomitant]
     Active Substance: RACECADOTRIL
     Dosage: UNK
  6. PRIMPERAN [Concomitant]
     Active Substance: METOCLOPRAMIDE HYDROCHLORIDE
     Dosage: UNK
  7. BISOPROLOL FUMARATE. [Concomitant]
     Active Substance: BISOPROLOL FUMARATE
     Dosage: UNK
  8. VANCOMYCINE MYLAN 500 MG, POWDER FOR SOLUTION FOR INFUSION [Suspect]
     Active Substance: VANCOMYCIN
     Indication: ABDOMINAL INFECTION
     Dosage: 3 GRAM, QD
     Route: 041
     Dates: start: 20200521, end: 20200528
  9. ONDANSETRON [Concomitant]
     Active Substance: ONDANSETRON
     Dosage: UNK
  10. LOPERAMIDE CHLORHYDRATE [Concomitant]
     Active Substance: LOPERAMIDE HYDROCHLORIDE
     Dosage: UNK
  11. LEXOMIL [Concomitant]
     Active Substance: BROMAZEPAM
     Dosage: UNK
  12. COUMADINE [Concomitant]
     Active Substance: WARFARIN SODIUM
     Dosage: UNK
  13. PANTOPRAZOLE [Concomitant]
     Active Substance: PANTOPRAZOLE
     Dosage: UNK
  14. TAZOCILLINE [Suspect]
     Active Substance: PIPERACILLIN SODIUM\TAZOBACTAM SODIUM
     Indication: CHOLECYSTITIS
     Dosage: 3 DOSAGE FORM, QD (STRENGTH: 4 G/500 MG))
     Route: 041
     Dates: start: 20200517, end: 20200531

REACTIONS (4)
  - Acute kidney injury [Recovered/Resolved]
  - Diarrhoea [Recovered/Resolved]
  - Vomiting [Recovered/Resolved]
  - Nausea [Recovered/Resolved]

NARRATIVE: CASE EVENT DATE: 20200527
